FAERS Safety Report 7233344-9 (Version None)
Quarter: 2011Q1

REPORT INFORMATION
  Report Type: 
  Country: None (occurrence: None)
  Receive Date: 20110113
  Receipt Date: 20110113
  Transmission Date: 20110831
  Serious: Yes (Hospitalization)
  Sender: FDA-Public Use
  Company Number: None

PATIENT
  Age: 30 Year
  Sex: Female
  Weight: 104.5 kg

DRUGS (2)
  1. ALEFACEPT [Suspect]
     Indication: IMMUNOSUPPRESSANT DRUG THERAPY
     Dosage: 7.5 MG ONCE IV - GIVEN X 2 DOSES
     Dates: start: 20100729, end: 20101209
  2. ALEFACEPT [Suspect]
     Indication: IMMUNOSUPPRESSANT DRUG THERAPY
     Dosage: 7.5 MG ONCE IV - GIVEN X 2 DOSES
     Dates: start: 20100722, end: 20100724

REACTIONS (1)
  - KIDNEY TRANSPLANT REJECTION [None]
